FAERS Safety Report 7198761-4 (Version None)
Quarter: 2010Q4

REPORT INFORMATION
  Report Type: 
  Country: None (occurrence: None)
  Receive Date: 20101227
  Receipt Date: 20101029
  Transmission Date: 20110411
  Serious: No
  Sender: FDA-Public Use
  Company Number: US-ABBOTT-10P-163-0682775-00

PATIENT
  Sex: Female
  Weight: 56.75 kg

DRUGS (3)
  1. LUPRON DEPOT [Suspect]
     Indication: PRODUCT USED FOR UNKNOWN INDICATION
     Dates: start: 20101026, end: 20101026
  2. LEVOTHYROXINE [Concomitant]
     Indication: HYPOTHYROIDISM
  3. ZOMIG [Concomitant]
     Indication: MIGRAINE

REACTIONS (1)
  - INJURY ASSOCIATED WITH DEVICE [None]
